FAERS Safety Report 5177216-2 (Version None)
Quarter: 2006Q4

REPORT INFORMATION
  Report Type: 
  Country: None (occurrence: None)
  Receive Date: 20061218
  Receipt Date: 20061207
  Transmission Date: 20070319
  Serious: Yes (Other)
  Sender: FDA-Public Use
  Company Number: US-ELI_LILLY_AND_COMPANY-US200612001279

PATIENT
  Age: 8 Year
  Sex: Male

DRUGS (2)
  1. STRATTERA [Suspect]
     Indication: ATTENTION DEFICIT/HYPERACTIVITY DISORDER
     Dosage: 25 MG, DAILY (1/D)
     Dates: start: 20061001, end: 20061202
  2. STRATTERA [Suspect]
     Dosage: 10 MG, DAILY (1/D)
     Dates: start: 20061101, end: 20061202

REACTIONS (3)
  - DRUG INEFFECTIVE [None]
  - JOINT HYPEREXTENSION [None]
  - TIC [None]
